FAERS Safety Report 8584524-1 (Version None)
Quarter: 2012Q3

REPORT INFORMATION
  Report Type: 
  Country: None (occurrence: None)
  Receive Date: 20120810
  Receipt Date: 20120807
  Transmission Date: 20120928
  Serious: No
  Sender: FDA-Public Use
  Company Number: US-PFIZER INC-2012155971

PATIENT
  Age: 42 Year
  Sex: Female
  Weight: 49.887 kg

DRUGS (3)
  1. LANTUS [Concomitant]
     Indication: TYPE 1 DIABETES MELLITUS
     Dosage: 10 IU,DAILY
  2. ALAVERT [Suspect]
     Indication: HYPERSENSITIVITY
     Dosage: 10 MG, DAILY
     Route: 048
  3. ALAVERT [Suspect]
     Indication: SEASONAL ALLERGY
     Dosage: UNK

REACTIONS (1)
  - THYROID DISORDER [None]
